FAERS Safety Report 6043713-0 (Version None)
Quarter: 2009Q1

REPORT INFORMATION
  Report Type: 
  Country: None (occurrence: None)
  Receive Date: 20090120
  Receipt Date: 20090109
  Transmission Date: 20090719
  Serious: Yes (Other)
  Sender: FDA-Public Use
  Company Number: PHEH2009US00674

PATIENT

DRUGS (1)
  1. RECLAST [Suspect]
     Dosage: 5 MG ONCE YEARLY
     Route: 042

REACTIONS (2)
  - SYNCOPE [None]
  - TACHYCARDIA [None]
